FAERS Safety Report 21211283 (Version 1)
Quarter: 2022Q3

REPORT INFORMATION
  Report Type: Spontaneous
  Country: US (occurrence: None)
  Receive Date: 20220812
  Receipt Date: 20220812
  Transmission Date: 20221027
  Serious: No
  Sender: FDA-Public Use
  Company Number: None

PATIENT
  Age: 61 Year
  Sex: Female
  Weight: 103.42 kg

DRUGS (8)
  1. XPOVIO [Suspect]
     Active Substance: SELINEXOR
     Indication: Endometrial cancer
     Dosage: FREQUENCY : DAILY;?
     Route: 048
     Dates: start: 202204
  2. ALEVE [Concomitant]
  3. ASIAN GINSENG [Concomitant]
     Active Substance: ASIAN GINSENG
  4. METOCLOPRAMIDE [Concomitant]
  5. OLANZAPINE [Concomitant]
  6. RENEW LIFE [Concomitant]
  7. VITAMIN D3 [Concomitant]
  8. ZOFRAN [Concomitant]

REACTIONS (2)
  - Back pain [None]
  - Groin pain [None]
